FAERS Safety Report 17820885 (Version 1)
Quarter: 2020Q2

REPORT INFORMATION
  Report Type: Spontaneous
  Country: GB (occurrence: GB)
  Receive Date: 20200525
  Receipt Date: 20200525
  Transmission Date: 20200714
  Serious: Yes (Other)
  Sender: FDA-Public Use
  Company Number: GB-ACCORD-183198

PATIENT
  Age: 70 Year
  Sex: Male
  Weight: 88 kg

DRUGS (13)
  1. TRIMETHOPRIM. [Concomitant]
     Active Substance: TRIMETHOPRIM
  2. SIMVASTATIN. [Concomitant]
     Active Substance: SIMVASTATIN
  3. FINASTERIDE. [Concomitant]
     Active Substance: FINASTERIDE
  4. TAMSULOSIN [Concomitant]
     Active Substance: TAMSULOSIN
  5. FOSTAIR [Concomitant]
     Active Substance: BECLOMETHASONE\FORMOTEROL
  6. PHYLLOCONTIN [Concomitant]
     Active Substance: AMINOPHYLLINE
  7. CICLESONIDE [Concomitant]
     Active Substance: CICLESONIDE
  8. TIOTROPIUM [Concomitant]
     Active Substance: TIOTROPIUM
  9. ITRACONAZOLE. [Suspect]
     Active Substance: ITRACONAZOLE
     Indication: SEVERE ASTHMA WITH FUNGAL SENSITISATION
     Route: 048
     Dates: start: 20190101, end: 20191015
  10. MONTELUKAST [Concomitant]
     Active Substance: MONTELUKAST SODIUM
  11. FEXOFENADINE [Concomitant]
     Active Substance: FEXOFENADINE HYDROCHLORIDE
  12. SALBUTAMOL BASE [Concomitant]
  13. AMLODIPINE [Concomitant]
     Active Substance: AMLODIPINE BESYLATE

REACTIONS (2)
  - Hypokalaemia [Recovered/Resolved]
  - Hypophosphataemia [Recovered/Resolved]

NARRATIVE: CASE EVENT DATE: 20190801
